FAERS Safety Report 8607719-7 (Version None)
Quarter: 2012Q3

REPORT INFORMATION
  Report Type: 
  Country: None (occurrence: None)
  Receive Date: 20120821
  Receipt Date: 20120813
  Transmission Date: 20120928
  Serious: Yes (Hospitalization)
  Sender: FDA-Public Use
  Company Number: DE-PFIZER INC-2012199669

PATIENT
  Sex: Female
  Weight: 71 kg

DRUGS (9)
  1. GENOTROPIN [Suspect]
     Dosage: 0.4 MG, 7/WK
     Route: 058
     Dates: start: 20040503
  2. SIMVASTATIN [Concomitant]
     Indication: HYPERCHOLESTEROLAEMIA
     Dosage: UNK
     Dates: start: 20040115
  3. METOPROLOL SUCCINATE [Concomitant]
     Indication: HYPERTENSION
     Dosage: UNK
     Dates: start: 20000215
  4. ANDANTE [Concomitant]
     Indication: HYPERTENSION
     Dosage: UNK
     Dates: start: 19981115
  5. OSSOFORTIN FORTE [Concomitant]
     Dosage: UNK
     Dates: start: 19991222
  6. LEVOTHYROXINE [Concomitant]
     Indication: BLOOD THYROID STIMULATING HORMONE DECREASED
     Dosage: UNK
     Dates: start: 19981115
  7. ALENDRONATE SODIUM [Concomitant]
     Indication: OSTEOPOROSIS
     Dosage: UNK
     Dates: start: 20060101
  8. OSPUR D3 [Concomitant]
     Indication: OSTEOPOROSIS
     Dosage: UNK
     Dates: start: 20001110
  9. LOSARTAN POTASSIUM AND HYDROCHLOROTHIAZIDE [Concomitant]
     Indication: CARDIAC DISORDER
     Dosage: UNK
     Dates: start: 20060101

REACTIONS (1)
  - SURGERY [None]
